FAERS Safety Report 10766472 (Version 2)
Quarter: 2015Q1

REPORT INFORMATION
  Report Type: Spontaneous
  Country: US (occurrence: US)
  Receive Date: 20150205
  Receipt Date: 20150302
  Transmission Date: 20150721
  Serious: Yes (Death)
  Sender: FDA-Public Use
  Company Number: US-BRACCO-011689

PATIENT
  Age: 72 Year
  Sex: Female
  Weight: 82 kg

DRUGS (1)
  1. PROHANCE [Suspect]
     Active Substance: GADOTERIDOL
     Indication: NUCLEAR MAGNETIC RESONANCE IMAGING BREAST
     Dosage: RIGHT ANTECUBITAL AREA
     Route: 042
     Dates: start: 20150105, end: 20150105

REACTIONS (2)
  - Contrast media reaction [None]
  - Unresponsive to stimuli [Fatal]

NARRATIVE: CASE EVENT DATE: 20150105
